FAERS Safety Report 7755214-X (Version None)
Quarter: 2011Q3

REPORT INFORMATION
  Report Type: 
  Country: None (occurrence: None)
  Receive Date: 20110913
  Receipt Date: 20110829
  Transmission Date: 20111222
  Serious: Yes (Hospitalization)
  Sender: FDA-Public Use
  Company Number: 2011P1008679

PATIENT
  Age: 83 Year
  Sex: Female

DRUGS (3)
  1. MORPHINE [Suspect]
     Indication: PREMEDICATION
     Dosage: 2.5 MG;X1
  2. PROPOFOL [Suspect]
     Indication: SEDATIVE THERAPY
     Dosage: 50 MG;X1
  3. FENTANYL [Suspect]
     Indication: SEDATIVE THERAPY
     Dosage: 50 MG;X1

REACTIONS (3)
  - OXYGEN SATURATION DECREASED [None]
  - OBSTRUCTIVE AIRWAYS DISORDER [None]
  - HYPOVENTILATION [None]
